FAERS Safety Report 11257396 (Version 1)
Quarter: 2015Q3

REPORT INFORMATION
  Report Type: Spontaneous
  Country: US (occurrence: US)
  Receive Date: 20150709
  Receipt Date: 20150709
  Transmission Date: 20151125
  Serious: No
  Sender: FDA-Public Use
  Company Number: US-009507513-1507USA000504

PATIENT
  Sex: Female
  Weight: 102 kg

DRUGS (1)
  1. REMERON SOLTAB [Suspect]
     Active Substance: MIRTAZAPINE
     Indication: DEPRESSION
     Dosage: UNK
     Route: 048

REACTIONS (5)
  - Pain [Recovering/Resolving]
  - Mental disorder [Recovering/Resolving]
  - Hepatic function abnormal [Recovering/Resolving]
  - Peripheral swelling [Recovering/Resolving]
  - Swelling [Recovering/Resolving]
